FAERS Safety Report 15419254 (Version 1)
Quarter: 2018Q3

REPORT INFORMATION
  Report Type: Spontaneous
  Country: US (occurrence: US)
  Receive Date: 20180924
  Receipt Date: 20180924
  Transmission Date: 20181010
  Serious: No
  Sender: FDA-Public Use
  Company Number: US-PFIZER INC-2018381082

PATIENT
  Age: 68 Year
  Sex: Female

DRUGS (1)
  1. GENOTROPIN MQ [Suspect]
     Active Substance: SOMATROPIN
     Dosage: 0.6 MG, DAILY
     Dates: start: 20160928

REACTIONS (9)
  - Dysphagia [Unknown]
  - High density lipoprotein decreased [Unknown]
  - Anxiety [Unknown]
  - Stress [Unknown]
  - Blood thyroid stimulating hormone decreased [Unknown]
  - Low density lipoprotein increased [Unknown]
  - Headache [Unknown]
  - Choking sensation [Unknown]
  - Non-high-density lipoprotein cholesterol increased [Unknown]
